FAERS Safety Report 8898073 (Version 1)
Quarter: 2012Q4

REPORT INFORMATION
  Report Type: 
  Country: US (occurrence: US)
  Receive Date: 20121108
  Receipt Date: 20121108
  Transmission Date: 20130627
  Serious: No
  Sender: FDA-Public Use
  Company Number: US-AMGEN-USASP2012030645

PATIENT
  Age: 46 Year
  Sex: Female
  Weight: 78.01 kg

DRUGS (5)
  1. ENBREL [Suspect]
     Indication: PRODUCT USED FOR UNKNOWN INDICATION
     Dosage: 50 mg, qwk
     Route: 058
  2. METHOTREXATE [Concomitant]
     Dosage: 20 mg, UNK
  3. FOLIC ACID [Concomitant]
     Dosage: UNK
  4. HYDROCODONE/HOMATROPINE [Concomitant]
     Dosage: UNK
  5. NAPROXEN DELAYED RELEASE [Concomitant]
     Dosage: 375 mg, UNK

REACTIONS (3)
  - Nasal congestion [Recovered/Resolved]
  - Pyrexia [Recovered/Resolved]
  - Injection site haemorrhage [Unknown]
